FAERS Safety Report 12557351 (Version 2)
Quarter: 2016Q4

REPORT INFORMATION
  Report Type: Spontaneous
  Country: IT (occurrence: IT)
  Receive Date: 20160714
  Receipt Date: 20161101
  Transmission Date: 20170207
  Serious: Yes (Hospitalization)
  Sender: FDA-Public Use
  Company Number: IT-MYLANLABS-2016M1028478

PATIENT

DRUGS (6)
  1. REPAGLINIDE MYLAN GENERICS REPAGLINIDE MYLAN GENERICS 2 MG COMPRESSE [Suspect]
     Active Substance: REPAGLINIDE
     Indication: DIABETES MELLITUS
     Dosage: 2 MG, TID
     Route: 048
     Dates: start: 20090511, end: 20160627
  2. AMLODIPINE [Concomitant]
     Active Substance: AMLODIPINE BESYLATE
     Indication: HYPERTENSION
     Dosage: 5 MG
     Route: 048
     Dates: start: 20090217, end: 20160627
  3. TORVAST [Concomitant]
     Active Substance: ATORVASTATIN
     Indication: HYPERCHOLESTEROLAEMIA
     Dosage: 10 MG
     Route: 048
     Dates: start: 20090217, end: 20160627
  4. PROPAFENONE. [Concomitant]
     Active Substance: PROPAFENONE
     Indication: ATRIAL FIBRILLATION
     Dosage: 450 MG
     Route: 048
     Dates: start: 20090217, end: 20160627
  5. METFORMIN [Suspect]
     Active Substance: METFORMIN HYDROCHLORIDE
     Indication: DIABETES MELLITUS
     Dosage: 1000 MG, QD
     Route: 048
     Dates: start: 20090511, end: 20160627
  6. CONVERTEN [Concomitant]
     Indication: HYPERTENSION
     Dosage: 20 MG
     Route: 048
     Dates: start: 20090217, end: 20160627

REACTIONS (5)
  - Drug abuse [Unknown]
  - Intentional product misuse [Recovering/Resolving]
  - Hypoglycaemic coma [Recovering/Resolving]
  - Diarrhoea [Recovering/Resolving]
  - Hypercreatinaemia [Recovering/Resolving]

NARRATIVE: CASE EVENT DATE: 201606
